FAERS Safety Report 8006704-6 (Version None)
Quarter: 2011Q4

REPORT INFORMATION
  Report Type: 
  Country: None (occurrence: None)
  Receive Date: 20111227
  Receipt Date: 20111215
  Transmission Date: 20120403
  Serious: No
  Sender: FDA-Public Use
  Company Number: US-BAYER-2011-104911

PATIENT

DRUGS (1)
  1. CIPRO [Suspect]
     Dosage: UNK
     Route: 048
     Dates: start: 20111001

REACTIONS (2)
  - PRODUCT ODOUR ABNORMAL [None]
  - DYSGEUSIA [None]
